FAERS Safety Report 21613780 (Version 1)
Quarter: 2022Q4

REPORT INFORMATION
  Report Type: Spontaneous
  Country: US (occurrence: US)
  Receive Date: 20221118
  Receipt Date: 20221118
  Transmission Date: 20230113
  Serious: No
  Sender: FDA-Public Use
  Company Number: US-AMGEN-USASP2022197318

PATIENT
  Age: 55 Year
  Sex: Female

DRUGS (1)
  1. AIMOVIG [Suspect]
     Active Substance: ERENUMAB-AOOE
     Indication: Migraine
     Dosage: UNK, QMO
     Route: 058
     Dates: end: 2022

REACTIONS (3)
  - Product administration interrupted [Unknown]
  - Migraine [Not Recovered/Not Resolved]
  - Menopause [Unknown]

NARRATIVE: CASE EVENT DATE: 20220101
